FAERS Safety Report 13554420 (Version 1)
Quarter: 2017Q2

REPORT INFORMATION
  Report Type: Spontaneous
  Country: DE (occurrence: DE)
  Receive Date: 20170517
  Receipt Date: 20170517
  Transmission Date: 20170830
  Serious: Yes (Hospitalization)
  Sender: FDA-Public Use
  Company Number: DE-EISAI MEDICAL RESEARCH-EC-2017-025940

PATIENT
  Sex: Female
  Weight: 48 kg

DRUGS (9)
  1. LORAZEPAM. [Concomitant]
     Active Substance: LORAZEPAM
     Indication: EPILEPSY
     Route: 048
  2. PANTOPRAZOL [Concomitant]
     Active Substance: PANTOPRAZOLE SODIUM
     Indication: GASTROOESOPHAGEAL REFLUX DISEASE
     Route: 048
  3. DIENOVEL [Concomitant]
     Indication: CONTRACEPTION
     Route: 048
  4. FYCOMPA [Interacting]
     Active Substance: PERAMPANEL
     Route: 048
     Dates: start: 2017
  5. LEVETIRACETAM. [Concomitant]
     Active Substance: LEVETIRACETAM
     Indication: EPILEPSY
     Route: 048
  6. STIRIPENTOL [Interacting]
     Active Substance: STIRIPENTOL
     Indication: EPILEPSY
     Route: 048
  7. LAMOTRIGINE. [Concomitant]
     Active Substance: LAMOTRIGINE
     Indication: EPILEPSY
     Route: 048
  8. FYCOMPA [Suspect]
     Active Substance: PERAMPANEL
     Indication: EPILEPSY
     Route: 048
     Dates: end: 2017
  9. FOLIC ACID. [Concomitant]
     Active Substance: FOLIC ACID
     Indication: FOLATE DEFICIENCY
     Route: 048

REACTIONS (2)
  - Aggression [Recovered/Resolved]
  - Drug interaction [Recovered/Resolved]

NARRATIVE: CASE EVENT DATE: 201702
